FAERS Safety Report 7116336-X (Version None)
Quarter: 2010Q4

REPORT INFORMATION
  Report Type: 
  Country: None (occurrence: None)
  Receive Date: 20101122
  Receipt Date: 20101110
  Transmission Date: 20110411
  Serious: Yes (Hospitalization)
  Sender: FDA-Public Use
  Company Number: A0893257A

PATIENT
  Sex: Male

DRUGS (1)
  1. AVANDIA [Suspect]
     Route: 048
     Dates: start: 20030101, end: 20080918

REACTIONS (2)
  - CARDIAC FAILURE CONGESTIVE [None]
  - DIASTOLIC DYSFUNCTION [None]
